FAERS Safety Report 25322637 (Version 2)
Quarter: 2025Q2

REPORT INFORMATION
  Report Type: Spontaneous
  Country: US (occurrence: US)
  Receive Date: 20250516
  Receipt Date: 20250523
  Transmission Date: 20250717
  Serious: No
  Sender: UNITED THERAPEUTICS
  Company Number: US-UNITED THERAPEUTICS-UNT-2025-001929

PATIENT
  Age: 66 Year
  Sex: Female
  Weight: 52.608 kg

DRUGS (25)
  1. REMODULIN [Suspect]
     Active Substance: TREPROSTINIL
     Indication: Pulmonary arterial hypertension
     Route: 041
  2. REMODULIN [Suspect]
     Active Substance: TREPROSTINIL
     Indication: Connective tissue disorder
     Route: 041
  3. REMODULIN [Suspect]
     Active Substance: TREPROSTINIL
     Route: 041
  4. REMODULIN [Suspect]
     Active Substance: TREPROSTINIL
     Route: 041
  5. REMODULIN [Suspect]
     Active Substance: TREPROSTINIL
     Route: 041
  6. SOTATERCEPT [Suspect]
     Active Substance: SOTATERCEPT
     Indication: Product used for unknown indication
  7. TADALAFIL [Concomitant]
     Active Substance: TADALAFIL
     Indication: Product used for unknown indication
     Dosage: 40 MG, QD
  8. LETAIRIS [Concomitant]
     Active Substance: AMBRISENTAN
     Indication: Product used for unknown indication
     Dosage: 10 MG, QD
  9. TYLENOL [Concomitant]
     Active Substance: ACETAMINOPHEN
     Indication: Headache
     Dosage: 1000 MG, Q8H (PRN)
  10. DRISDOL [Concomitant]
     Active Substance: ERGOCALCIFEROL
     Indication: Product used for unknown indication
     Dosage: 50,000 UNITS, QWK
  11. ARNUITY ELLIPTA [Concomitant]
     Active Substance: FLUTICASONE FUROATE
     Indication: Product used for unknown indication
     Dosage: UNK [1 PUFF], QD
  12. FLONASE [Concomitant]
     Active Substance: FLUTICASONE PROPIONATE
     Indication: Product used for unknown indication
     Dosage: UNK [2 SPRAYS INTO EACH NOSTRIL], QD
  13. LASIX [Concomitant]
     Active Substance: FUROSEMIDE
     Indication: Product used for unknown indication
     Dosage: 20 MG, BID
  14. SYNTHROID [Concomitant]
     Active Substance: LEVOTHYROXINE SODIUM
     Indication: Product used for unknown indication
     Dosage: 88 MCG, QD [BEFORE BREAKFAST]
  15. PROAMATINE [Concomitant]
     Active Substance: MIDODRINE HYDROCHLORIDE
     Indication: Hypotension
     Dosage: 10 MG, TID
  16. PROAMATINE [Concomitant]
     Active Substance: MIDODRINE HYDROCHLORIDE
     Dosage: 5 MG, TID
  17. PROAMATINE [Concomitant]
     Active Substance: MIDODRINE HYDROCHLORIDE
     Dosage: 2.5 MG, TID
  18. SINGULAIR [Concomitant]
     Active Substance: MONTELUKAST SODIUM
     Indication: Product used for unknown indication
     Dosage: 10 MG, QD
  19. OXYGEN [Concomitant]
     Active Substance: OXYGEN
     Indication: Product used for unknown indication
  20. PROTONIX [Concomitant]
     Active Substance: PANTOPRAZOLE SODIUM
     Indication: Product used for unknown indication
     Dosage: 40 MG, QD [EVERY MORNING]
  21. KLOR-CON M20 [Concomitant]
     Active Substance: POTASSIUM CHLORIDE
     Indication: Product used for unknown indication
     Dosage: UNK [20 MEQ], QD
  22. ALDACTONE [Concomitant]
     Active Substance: SPIRONOLACTONE
     Indication: Product used for unknown indication
     Dosage: 50 MG, QD
  23. ADCIRCA [Concomitant]
     Active Substance: TADALAFIL
     Indication: Product used for unknown indication
     Dosage: 40 MG [TAKING 2 TABLETS OF 20 MG], QD
  24. TIMOPTIC [Concomitant]
     Active Substance: TIMOLOL MALEATE
     Indication: Product used for unknown indication
     Dosage: UNK [1 DROP TO RIGHT EYE EVERY MORNING], QD
  25. VENTOLIN HFA [Concomitant]
     Active Substance: ALBUTEROL SULFATE
     Indication: Wheezing
     Dosage: UNK [2 PUFFS], Q6H (PRN)

REACTIONS (12)
  - Drug tolerance decreased [Unknown]
  - Fatigue [Recovered/Resolved]
  - Decreased activity [Unknown]
  - Headache [Unknown]
  - Brain fog [Unknown]
  - Hypotension [Recovering/Resolving]
  - Nausea [Recovering/Resolving]
  - Decreased appetite [Recovered/Resolved]
  - Lethargy [Recovered/Resolved]
  - Presyncope [Recovered/Resolved]
  - Flushing [Unknown]
  - Sinusitis [Unknown]

NARRATIVE: CASE EVENT DATE: 20230301
